FAERS Safety Report 4421049-9 (Version None)
Quarter: 2004Q3

REPORT INFORMATION
  Report Type: 
  Country: None (occurrence: None)
  Receive Date: 20040809
  Receipt Date: 20040719
  Transmission Date: 20050211
  Serious: Yes (Death, Other)
  Sender: FDA-Public Use
  Company Number: PHEH2004US07772

PATIENT
  Age: 64 Year
  Sex: Male
  Weight: 91 kg

DRUGS (14)
  1. AREDIA [Suspect]
     Indication: MULTIPLE MYELOMA
     Dosage: 90-180MG/Q28DAYS
     Route: 042
     Dates: start: 19960614, end: 20010404
  2. VINCRISTINE + ADRIAMYCIN + DEXAMETHASONE [Concomitant]
     Indication: MULTIPLE MYELOMA
     Dates: start: 19960516, end: 19960724
  3. MESNA [Concomitant]
     Dates: start: 19961202, end: 19961204
  4. MITOXANTRONE [Concomitant]
     Dates: start: 19961202, end: 19961204
  5. THIOTEPA [Concomitant]
  6. CYTOXAN [Concomitant]
  7. THALIDOMIDE [Concomitant]
  8. CISPLATIN [Concomitant]
  9. PROLEUKIN [Concomitant]
  10. NEUPOGEN [Concomitant]
  11. MELPHAN [Concomitant]
  12. DECADRON [Concomitant]
  13. ALLOPURINOL [Concomitant]
     Indication: TUMOUR LYSIS SYNDROME
     Dosage: 300 MG, QD
  14. CORTICOSTEROIDS [Concomitant]

REACTIONS (6)
  - ANGIOPATHY [None]
  - BONE DENSITY INCREASED [None]
  - ORAL SURGERY [None]
  - OSTEONECROSIS [None]
  - SEPTIC SHOCK [None]
  - TOOTH EXTRACTION [None]
